FAERS Safety Report 4929966-8 (Version None)
Quarter: 2006Q1

REPORT INFORMATION
  Report Type: 
  Country: None (occurrence: None)
  Receive Date: 20060127
  Receipt Date: 20051014
  Transmission Date: 20060701
  Serious: Yes (Other)
  Sender: FDA-Public Use
  Company Number: 2005143528

PATIENT
  Age: 20 Year
  Sex: Female

DRUGS (5)
  1. PREGABALIN (PREGABALIN) [Suspect]
     Indication: CONVULSION
     Dosage: 150 MG (75 MG, 2 IN 1 D)
     Dates: start: 20050901
  2. LAMICTAL [Concomitant]
  3. ZOLOFT [Concomitant]
  4. DEPAKOTE [Concomitant]
  5. CLOBAZAM (CLOBAZAM) [Concomitant]

REACTIONS (2)
  - BLOOD CREATINE PHOSPHOKINASE INCREASED [None]
  - FATIGUE [None]
